FAERS Safety Report 4911146-3 (Version None)
Quarter: 2006Q1

REPORT INFORMATION
  Report Type: 
  Country: None (occurrence: None)
  Receive Date: 20060214
  Receipt Date: 20060206
  Transmission Date: 20060701
  Serious: Yes (Death)
  Sender: FDA-Public Use
  Company Number: US-JNJFOC-20060201619

PATIENT
  Sex: Female
  Weight: 107.2 kg

DRUGS (22)
  1. REMICADE [Suspect]
     Route: 042
  2. REMICADE [Suspect]
     Indication: RHEUMATOID ARTHRITIS
     Dosage: 4 MG/KG EVERY 6-8 WEEKS
     Route: 042
  3. ALLOPURINOL [Concomitant]
  4. LASIX [Concomitant]
  5. PLAQUENIL [Concomitant]
  6. FOLIC ACID [Concomitant]
  7. FLEXERIL [Concomitant]
  8. ULTRAM [Concomitant]
     Dosage: PRN
  9. PRINIVIL [Concomitant]
  10. PREVACID [Concomitant]
  11. MICRONASE [Concomitant]
     Dosage: DAILY
  12. GLUCOPHAGE [Concomitant]
  13. TRICOR [Concomitant]
     Dosage: DAILY
  14. CALCIUM GLUCONATE [Concomitant]
  15. MULTIVITAMIN [Concomitant]
  16. MULTIVITAMIN [Concomitant]
  17. MULTIVITAMIN [Concomitant]
  18. MULTIVITAMIN [Concomitant]
  19. MULTIVITAMIN [Concomitant]
  20. MULTIVITAMIN [Concomitant]
  21. MULTIVITAMIN [Concomitant]
  22. MULTIVITAMIN [Concomitant]

REACTIONS (1)
  - BRAIN NEOPLASM MALIGNANT [None]
